FAERS Safety Report 19733347 (Version 1)
Quarter: 2021Q3

REPORT INFORMATION
  Report Type: Spontaneous
  Country: FR (occurrence: FR)
  Receive Date: 20210823
  Receipt Date: 20210823
  Transmission Date: 20211014
  Serious: Yes (Hospitalization, Other)
  Sender: FDA-Public Use
  Company Number: FR-AUROBINDO-AUR-APL-2021-035677

PATIENT
  Age: 82 Year
  Sex: Female
  Weight: 78 kg

DRUGS (3)
  1. ESCITALOPRAM [Suspect]
     Active Substance: ESCITALOPRAM OXALATE
     Indication: DEPRESSION
     Dosage: 10 MILLIGRAM, ONCE A DAY
     Route: 048
     Dates: start: 20210701
  2. TEICOPLANINE MYLAN [Suspect]
     Active Substance: TEICOPLANIN
     Indication: INFECTION
     Dosage: 600 MILLIGRAM, ONCE A DAY
     Route: 041
     Dates: start: 20210723, end: 20210729
  3. TEICOPLANINE MYLAN [Suspect]
     Active Substance: TEICOPLANIN
     Dosage: 400 MILLIGRAM, TWO TIMES A DAY
     Route: 041
     Dates: start: 20210717, end: 20210722

REACTIONS (2)
  - Anaemia [Recovering/Resolving]
  - Thrombocytopenia [Recovering/Resolving]

NARRATIVE: CASE EVENT DATE: 20210729
